FAERS Safety Report 6636981-5 (Version None)
Quarter: 2010Q1

REPORT INFORMATION
  Report Type: 
  Country: None (occurrence: None)
  Receive Date: 20100316
  Receipt Date: 20100311
  Transmission Date: 20100710
  Serious: Yes (Life-Threatening, Hospitalization)
  Sender: FDA-Public Use
  Company Number: AU-SANOFI-AVENTIS-2010SA014161

PATIENT
  Age: 76 Year
  Sex: Male

DRUGS (4)
  1. OXALIPLATIN [Suspect]
     Indication: COLORECTAL CANCER
     Route: 041
     Dates: start: 20091230, end: 20091230
  2. XELODA [Suspect]
     Indication: COLORECTAL CANCER
     Route: 048
     Dates: start: 20091230, end: 20100114
  3. GRANISETRON [Concomitant]
     Route: 065
     Dates: start: 20091230, end: 20091230
  4. DOMPERIDONE [Concomitant]
     Route: 065
     Dates: start: 20091230, end: 20100101

REACTIONS (8)
  - DIARRHOEA [None]
  - HYPOVOLAEMIC SHOCK [None]
  - ILEUS [None]
  - INTESTINAL FUNCTIONAL DISORDER [None]
  - PLATELET COUNT DECREASED [None]
  - PYREXIA [None]
  - RENAL FAILURE [None]
  - WHITE BLOOD CELL COUNT INCREASED [None]
